FAERS Safety Report 7845708-0 (Version None)
Quarter: 2011Q4

REPORT INFORMATION
  Report Type: 
  Country: None (occurrence: None)
  Receive Date: 20111025
  Receipt Date: 20111020
  Transmission Date: 20120403
  Serious: Yes (Hospitalization)
  Sender: FDA-Public Use
  Company Number: AT-AMGEN-AUTNI2011010804

PATIENT
  Age: 14 Year
  Sex: Female

DRUGS (9)
  1. MYCOPHENOLATE MOFETIL (CELLCEPT) [Suspect]
     Dosage: 250 MG, UNK
  2. CORTISONE ACETATE [Concomitant]
  3. FUROSEMIDE [Concomitant]
  4. NIFEBENE [Concomitant]
  5. PANTOPRAZOLE SODIUM [Concomitant]
  6. MINOXIDIL [Concomitant]
  7. PREDNISONE [Concomitant]
  8. MYCOPHENOLATE MOFETIL [Concomitant]
  9. DARBEPOETIN ALFA [Suspect]
     Indication: RENAL FAILURE CHRONIC
     Dosage: 30 MUG, QWK
     Route: 042
     Dates: start: 20110113, end: 20110209

REACTIONS (2)
  - HAEMOLYTIC ANAEMIA [None]
  - THROMBOCYTOPENIA [None]
